FAERS Safety Report 16583284 (Version 1)
Quarter: 2019Q3

REPORT INFORMATION
  Report Type: Spontaneous
  Country: PL (occurrence: PL)
  Receive Date: 20190717
  Receipt Date: 20190717
  Transmission Date: 20191004
  Serious: Yes (Other)
  Sender: FDA-Public Use
  Company Number: PL-009507513-1907POL009996

PATIENT
  Age: 16 Month
  Sex: Female

DRUGS (1)
  1. AERIUS (DESLORATADINE) [Suspect]
     Active Substance: DESLORATADINE
     Indication: SKIN LESION
     Dosage: 1 MILLILITER, QD

REACTIONS (7)
  - Balance disorder [Unknown]
  - Asthenia [Unknown]
  - Dissociation [Unknown]
  - Tremor [Unknown]
  - Mobility decreased [Unknown]
  - Fear [Unknown]
  - Somnolence [Unknown]
